FAERS Safety Report 4930335-5 (Version None)
Quarter: 2006Q1

REPORT INFORMATION
  Report Type: 
  Country: None (occurrence: None)
  Receive Date: 20060302
  Receipt Date: 20060224
  Transmission Date: 20060701
  Serious: Yes (Hospitalization, Other)
  Sender: FDA-Public Use
  Company Number: DE-JNJFOC-20060200952

PATIENT
  Age: 62 Year
  Sex: Male

DRUGS (6)
  1. REMICADE [Suspect]
     Indication: RHEUMATOID ARTHRITIS
     Route: 042
  2. METHOTREXATE [Concomitant]
     Indication: RHEUMATOID ARTHRITIS
  3. DECORTIN [Concomitant]
  4. PLAVIX [Concomitant]
  5. CONCOR [Concomitant]
  6. OMEPRAZOLE [Concomitant]

REACTIONS (3)
  - CEREBRAL INFARCTION [None]
  - GLOMERULONEPHRITIS [None]
  - LEUKOCYTOCLASTIC VASCULITIS [None]
